FAERS Safety Report 4504735-1 (Version None)
Quarter: 2004Q4

REPORT INFORMATION
  Report Type: 
  Country: None (occurrence: None)
  Receive Date: 20041118
  Receipt Date: 20041018
  Transmission Date: 20050328
  Serious: Yes (Death, Hospitalization)
  Sender: FDA-Public Use
  Company Number: DE-MERCK-0410DEU00528

PATIENT
  Age: 62 Year
  Sex: Male
  Weight: 97 kg

DRUGS (9)
  1. VIOXX [Suspect]
     Indication: RHEUMATOID ARTHRITIS
     Route: 048
     Dates: start: 20030120, end: 20041004
  2. HYDROMORPHONE HYDROCHLORIDE [Concomitant]
     Indication: RHEUMATOID ARTHRITIS
     Route: 048
     Dates: start: 20040927, end: 20041004
  3. TORSEMIDE [Concomitant]
     Indication: HYPERTENSIVE HEART DISEASE
     Route: 065
     Dates: start: 20040226, end: 20041004
  4. METHOTREXATE SODIUM [Concomitant]
     Route: 065
     Dates: start: 20040124
  5. GLYBURIDE [Concomitant]
     Indication: DIABETES MELLITUS NON-INSULIN-DEPENDENT
     Route: 065
     Dates: start: 20040331
  6. OXYCODONE HYDROCHLORIDE [Concomitant]
     Route: 065
     Dates: start: 20040120, end: 20041004
  7. GLIMEPIRIDE [Concomitant]
     Route: 065
     Dates: start: 20040506, end: 20041004
  8. PREDNISOLONE [Concomitant]
     Indication: RHEUMATOID ARTHRITIS
     Route: 065
     Dates: start: 20040120, end: 20041004
  9. HYDROCHLOROTHIAZIDE AND VALSARTAN [Concomitant]
     Indication: HYPERTENSION
     Route: 065
     Dates: start: 20040726, end: 20041004

REACTIONS (3)
  - CARDIAC FAILURE ACUTE [None]
  - RHEUMATOID NODULE [None]
  - SUDDEN CARDIAC DEATH [None]
